FAERS Safety Report 5422771-8 (Version None)
Quarter: 2007Q3

REPORT INFORMATION
  Report Type: 
  Country: None (occurrence: None)
  Receive Date: 20070730
  Receipt Date: 20060711
  Transmission Date: 20080115
  Serious: Yes (Other)
  Sender: FDA-Public Use
  Company Number: 200613719BWH

PATIENT
  Sex: Male

DRUGS (2)
  1. AVELOX [Suspect]
     Indication: BRONCHITIS
     Dates: start: 20060101
  2. LEVAQUIN [Suspect]
     Indication: BRONCHITIS
     Dates: start: 20060101

REACTIONS (2)
  - TENDON DISORDER [None]
  - TENDON INJURY [None]
